FAERS Safety Report 6986404-1 (Version None)
Quarter: 2010Q3

REPORT INFORMATION
  Report Type: 
  Country: None (occurrence: None)
  Receive Date: 20100910
  Receipt Date: 20100906
  Transmission Date: 20110219
  Serious: Yes (Hospitalization, Other)
  Sender: FDA-Public Use
  Company Number: 014408

PATIENT
  Sex: Female
  Weight: 95 kg

DRUGS (10)
  1. LACOSAMIDE [Suspect]
     Indication: DIABETIC NEUROPATHY
     Dosage: (150 MG BID ORAL)
     Route: 048
     Dates: start: 20041006
  2. LACOSAMIDE [Suspect]
  3. LACOSAMIDE [Suspect]
  4. LACOSAMIDE [Suspect]
  5. ASPIRIN [Concomitant]
  6. DIABETASE [Concomitant]
  7. LEVOTHYROXINE SODIUM [Concomitant]
  8. BLOPRESS PLUS [Concomitant]
  9. ACTOS [Concomitant]
  10. SIMVASTATIN [Concomitant]

REACTIONS (2)
  - ANGINA PECTORIS [None]
  - MYOCARDIAL INFARCTION [None]
